FAERS Safety Report 9039651 (Version 1)
Quarter: 2013Q1

REPORT INFORMATION
  Report Type: Report from Study
  Country: US (occurrence: US)
  Receive Date: 20130129
  Receipt Date: 20130129
  Transmission Date: 20140127
  Serious: No
  Sender: FDA-Public Use
  Company Number: US-ABBOTT-12P-163-0924940-00

PATIENT
  Age: 50 None
  Sex: Female
  Weight: 74.91 kg

DRUGS (10)
  1. HUMIRA 40 MG/0.8 ML PEN [Suspect]
     Indication: RHEUMATOID ARTHRITIS
     Route: 058
     Dates: start: 20120328
  2. PREDNISONE [Concomitant]
     Indication: RHEUMATOID ARTHRITIS
     Route: 048
  3. VESICARE [Concomitant]
     Indication: URINARY INCONTINENCE
  4. POTASSIUM [Concomitant]
     Indication: PRODUCT USED FOR UNKNOWN INDICATION
     Route: 048
  5. TRAZODONE [Concomitant]
     Indication: INSOMNIA
     Dosage: AT BEDTIME
  6. CITALOPRAM [Concomitant]
     Indication: ANXIETY
     Dosage: IN THE MORNING
  7. CITALOPRAM [Concomitant]
     Indication: DEPRESSION
  8. PERCOCET [Concomitant]
     Indication: PAIN
     Dosage: 10/325MG, AS REQUIRED
     Route: 048
  9. XANAX [Concomitant]
     Indication: ANXIETY
  10. HYDROCODONE [Concomitant]
     Indication: PAIN
     Dosage: 10/325MG, AS REQUIRED

REACTIONS (10)
  - Dry skin [Not Recovered/Not Resolved]
  - Psoriasis [Not Recovered/Not Resolved]
  - Oral candidiasis [Not Recovered/Not Resolved]
  - Drug ineffective [Not Recovered/Not Resolved]
  - Oedema [Not Recovered/Not Resolved]
  - Musculoskeletal stiffness [Not Recovered/Not Resolved]
  - Fatigue [Not Recovered/Not Resolved]
  - Arthropod sting [Unknown]
  - Pain [Unknown]
  - Burning sensation [Unknown]
